FAERS Safety Report 5583025-2 (Version None)
Quarter: 2008Q1

REPORT INFORMATION
  Report Type: 
  Country: None (occurrence: None)
  Receive Date: 20080107
  Receipt Date: 20080102
  Transmission Date: 20080703
  Serious: Yes (Life-Threatening, Hospitalization, Other)
  Sender: FDA-Public Use
  Company Number: A0686148A

PATIENT
  Age: 42 Year
  Sex: Male
  Weight: 63.6 kg

DRUGS (4)
  1. LAMICTAL [Suspect]
     Indication: BIPOLAR DISORDER
     Dosage: 25MG IN THE MORNING
     Route: 048
     Dates: start: 20070906, end: 20070912
  2. CAMPRAL [Concomitant]
     Route: 048
     Dates: start: 20070329
  3. LEXAPRO [Concomitant]
     Route: 048
     Dates: start: 20070421
  4. LYRICA [Concomitant]
     Dates: start: 20070830

REACTIONS (3)
  - PNEUMONIA [None]
  - PYREXIA [None]
  - RASH [None]
